FAERS Safety Report 9028120 (Version 1)
Quarter: 2013Q1

REPORT INFORMATION
  Report Type: Spontaneous
  Country: US (occurrence: US)
  Receive Date: 20130123
  Receipt Date: 20130123
  Transmission Date: 20140127
  Serious: Yes (Hospitalization)
  Sender: FDA-Public Use
  Company Number: US-BAYER-2013-007315

PATIENT
  Age: 36 Year
  Sex: Female

DRUGS (5)
  1. YAZ [Suspect]
     Indication: DYSFUNCTIONAL UTERINE BLEEDING
  2. YASMIN [Suspect]
  3. LEVETIRACETAM [Concomitant]
  4. FAMOTIDIN [Concomitant]
  5. TYLENOL [Concomitant]
     Indication: HEADACHE

REACTIONS (2)
  - Cerebral venous thrombosis [Recovering/Resolving]
  - Jugular vein thrombosis [Recovering/Resolving]
